FAERS Safety Report 17880497 (Version 1)
Quarter: 2020Q2

REPORT INFORMATION
  Report Type: Spontaneous
  Country: US (occurrence: US)
  Receive Date: 20200609
  Receipt Date: 20200609
  Transmission Date: 20200714
  Serious: No
  Sender: FDA-Public Use
  Company Number: None

PATIENT
  Age: 84 Year
  Sex: Female

DRUGS (1)
  1. OTEZLA [Suspect]
     Active Substance: APREMILAST
     Indication: PSORIASIS
     Dosage: AS DIERCTED
     Route: 048
     Dates: start: 201805

REACTIONS (4)
  - Nerve block [None]
  - Hypoaesthesia [None]
  - Atrial fibrillation [None]
  - Blood test abnormal [None]
